FAERS Safety Report 5169360-0 (Version None)
Quarter: 2006Q4

REPORT INFORMATION
  Report Type: 
  Country: None (occurrence: None)
  Receive Date: 20061211
  Receipt Date: 20061127
  Transmission Date: 20070319
  Serious: Yes (Death, Hospitalization, Other)
  Sender: FDA-Public Use
  Company Number: ES-BRISTOL-MYERS SQUIBB COMPANY-13592787

PATIENT
  Age: 23 Year
  Sex: Male

DRUGS (3)
  1. PACLITAXEL [Suspect]
     Dates: start: 20020301
  2. CARBOPLATIN [Suspect]
     Dates: start: 20020301
  3. ETOPOSIDE [Suspect]
     Dates: start: 20020301

REACTIONS (4)
  - ANAEMIA [None]
  - DYSURIA [None]
  - MALIGNANT NEOPLASM PROGRESSION [None]
  - VOMITING [None]
